FAERS Safety Report 17854016 (Version 6)
Quarter: 2022Q2

REPORT INFORMATION
  Report Type: Report from Study
  Country: PL (occurrence: PL)
  Receive Date: 20200603
  Receipt Date: 20220504
  Transmission Date: 20220721
  Serious: Yes (Life-Threatening, Other)
  Sender: FDA-Public Use
  Company Number: PL-JNJFOC-20200536396

PATIENT
  Age: 70 Year
  Sex: Male
  Weight: 75.4 kg

DRUGS (13)
  1. NIRAPARIB [Suspect]
     Active Substance: NIRAPARIB
     Indication: Prostate cancer
     Dosage: 200 MG, QD (SKIPPED DOSE: 17-APR-2020 - 24-APR-2020; 16-MAY-2020 - 28-MAY-2020; 29-DEC-2020   )
     Route: 065
     Dates: start: 20200320
  2. NIRAPARIB [Suspect]
     Active Substance: NIRAPARIB
     Dosage: 200 MG, QD (RESTARTED AND MOST RECENT DOSE RECEIVED ON 14-MAY-2020   )
     Route: 065
     Dates: start: 20200420
  3. NIRAPARIB [Suspect]
     Active Substance: NIRAPARIB
     Dosage: 100 MG, QD (SKIPPED DOSE: 17-APR-2020 - 24-APR-2020; 16-MAY-2020 - 28-MAY-2020; 29-DEC-2020   )
     Route: 065
     Dates: start: 20200529
  4. ABIRATERONE ACETATE [Concomitant]
     Active Substance: ABIRATERONE ACETATE
     Indication: Prostate cancer
     Dosage: MOST RECENT DOSE RECEIVED ON 20-MAY-2020
     Route: 048
     Dates: start: 20200320
  5. ABIRATERONE ACETATE [Concomitant]
     Active Substance: ABIRATERONE ACETATE
     Dosage: MOST RECENT DOSE RECEIVED ON 20-MAY-2020
     Route: 048
     Dates: start: 20200320
  6. PREDNISONE [Concomitant]
     Active Substance: PREDNISONE
     Indication: Prostate cancer
     Dosage: MOST RECENT DOSE RECEIVED ON 20-MAY-2020
     Route: 048
     Dates: start: 20200320
  7. PREDNISONE [Concomitant]
     Active Substance: PREDNISONE
     Dosage: MOST RECENT DOSE RECEIVED ON 20-MAY-2020
     Route: 048
     Dates: start: 20200320
  8. ELIGARD [Concomitant]
     Active Substance: LEUPROLIDE ACETATE
     Indication: Prostate cancer
     Dosage: 22.5 MG, TID
     Route: 058
     Dates: start: 20190215
  9. BISOPROLOL [Concomitant]
     Active Substance: BISOPROLOL
     Indication: Hypertension
     Dosage: 2.5 MG, QD
     Route: 048
  10. ENALAPRIL [Concomitant]
     Active Substance: ENALAPRIL
     Indication: Hypertension
     Dosage: 5 MG, BID
     Route: 048
  11. ROSUVASTATIN [Concomitant]
     Active Substance: ROSUVASTATIN
     Indication: Hypercholesterolaemia
     Dosage: 5 MG, QD
     Route: 048
  12. ZOLEDRONIC ACID [Concomitant]
     Active Substance: ZOLEDRONIC ACID
     Indication: Metastases to bone
     Dosage: 4 MG
     Route: 042
     Dates: start: 20190318
  13. ZOLEDRONIC ACID [Concomitant]
     Active Substance: ZOLEDRONIC ACID
     Indication: Metastases to bone

REACTIONS (1)
  - Neutropenia [Recovered/Resolved]

NARRATIVE: CASE EVENT DATE: 20200410
